FAERS Safety Report 10973326 (Version 1)
Quarter: 2015Q1

REPORT INFORMATION
  Report Type: Spontaneous
  Country: US (occurrence: None)
  Receive Date: 20150331
  Receipt Date: 20150331
  Transmission Date: 20150721
  Serious: Yes (Death)
  Sender: FDA-Public Use
  Company Number: None

PATIENT
  Age: 51 Year
  Sex: Male

DRUGS (9)
  1. FUROSEMIDE. [Concomitant]
     Active Substance: FUROSEMIDE
  2. ALTEPLASE [Concomitant]
     Active Substance: ALTEPLASE
  3. DIGOXIN. [Concomitant]
     Active Substance: DIGOXIN
  4. ALTEPLASE [Suspect]
     Active Substance: ALTEPLASE
     Indication: THROMBOLYSIS
  5. CARVEDILOL. [Concomitant]
     Active Substance: CARVEDILOL
  6. HEPARIN [Concomitant]
     Active Substance: HEPARIN SODIUM
  7. NORCO [Concomitant]
     Active Substance: ACETAMINOPHEN\HYDROCODONE BITARTRATE
  8. HEPARIN [Suspect]
     Active Substance: HEPARIN SODIUM
  9. PEPCID [Concomitant]
     Active Substance: FAMOTIDINE

REACTIONS (1)
  - Haemorrhage intracranial [None]

NARRATIVE: CASE EVENT DATE: 20150130
